FAERS Safety Report 8145360-3 (Version None)
Quarter: 2012Q1

REPORT INFORMATION
  Report Type: 
  Country: None (occurrence: None)
  Receive Date: 20120217
  Receipt Date: 20120209
  Transmission Date: 20120608
  Serious: Yes (Disabling)
  Sender: FDA-Public Use
  Company Number: NZ-B.I. PHARMACEUTICALS,INC./RIDGEFIELD-2012-EU-00855GD

PATIENT

DRUGS (1)
  1. DABIGATRAN ETEXILATE [Suspect]

REACTIONS (1)
  - DISABILITY [None]
